FAERS Safety Report 8098702-1 (Version None)
Quarter: 2012Q1

REPORT INFORMATION
  Report Type: 
  Country: None (occurrence: None)
  Receive Date: 20120131
  Receipt Date: 20120119
  Transmission Date: 20120608
  Serious: Yes (Hospitalization)
  Sender: FDA-Public Use
  Company Number: US-JNJFOC-20120108665

PATIENT
  Age: 50 Year
  Sex: Female
  Weight: 76.2 kg

DRUGS (6)
  1. VICODIN [Concomitant]
  2. ZOLPIDEM [Concomitant]
  3. TYLENOL COLD + COUGH NIGHTIME [Suspect]
     Indication: PRODUCT USED FOR UNKNOWN INDICATION
     Dates: start: 20120101
  4. CYCLOBENZAPRINE [Concomitant]
  5. DIPHENHYDRAMINE HCL [Suspect]
  6. DIPHENHYDRAMINE HCL [Suspect]
     Indication: PRODUCT USED FOR UNKNOWN INDICATION
     Dates: start: 20120101

REACTIONS (3)
  - COMA [None]
  - MULTIPLE DRUG OVERDOSE [None]
  - TRANSAMINASES INCREASED [None]
